FAERS Safety Report 7517038-8 (Version None)
Quarter: 2011Q2

REPORT INFORMATION
  Report Type: 
  Country: None (occurrence: None)
  Receive Date: 20110601
  Receipt Date: 20110518
  Transmission Date: 20111010
  Serious: Yes (Hospitalization)
  Sender: FDA-Public Use
  Company Number: JP-JNJFOC-20101100466

PATIENT
  Sex: Female
  Weight: 48 kg

DRUGS (11)
  1. REMICADE [Suspect]
     Indication: PUSTULAR PSORIASIS
     Route: 042
     Dates: start: 20101022
  2. BONALFA [Concomitant]
     Indication: PUSTULAR PSORIASIS
     Dosage: START DATE REPORTED AS BEFORE INITIATION OF INFLIXIMAB
  3. REMICADE [Suspect]
     Route: 042
     Dates: start: 20100825
  4. TALION [Concomitant]
     Indication: PUSTULAR PSORIASIS
     Route: 048
     Dates: start: 20100921, end: 20101004
  5. TOPSYM [Concomitant]
     Indication: PUSTULAR PSORIASIS
     Dosage: START DATE REPORTED AS BEFORE INITIATION OF INFLIXIMAB
  6. FULMETA [Concomitant]
     Indication: PUSTULAR PSORIASIS
     Dosage: START DATE REPORTED AS BEFORE INITIATION OF INFLIXIMAB
  7. REMICADE [Suspect]
     Route: 042
     Dates: start: 20100517
  8. REMICADE [Suspect]
     Route: 042
     Dates: start: 20100628
  9. CYCLOSPORINE [Concomitant]
     Indication: PUSTULAR PSORIASIS
     Route: 048
  10. OXAROL [Concomitant]
     Indication: PUSTULAR PSORIASIS
     Dosage: START DATE REPORTED AS BEFORE INITIATION OF INFLIXIMAB
  11. REMICADE [Suspect]
     Route: 042
     Dates: start: 20100531

REACTIONS (1)
  - PEMPHIGOID [None]
